FAERS Safety Report 17357373 (Version 1)
Quarter: 2020Q1

REPORT INFORMATION
  Report Type: Spontaneous
  Country: GB (occurrence: GB)
  Receive Date: 20200131
  Receipt Date: 20200131
  Transmission Date: 20200409
  Serious: Yes (Other)
  Sender: FDA-Public Use
  Company Number: GB-MYLANLABS-2020M1011199

PATIENT
  Age: 42 Year

DRUGS (4)
  1. PREDNISOLONE. [Suspect]
     Active Substance: PREDNISOLONE
     Indication: IMMUNODEFICIENCY COMMON VARIABLE
     Dosage: MORE THAN 7.5MG PER DAY
     Route: 065
  2. BUDESONIDE. [Suspect]
     Active Substance: BUDESONIDE
     Indication: ENTERITIS
     Dosage: UNK
  3. BUDESONIDE. [Suspect]
     Active Substance: BUDESONIDE
     Indication: IMMUNODEFICIENCY COMMON VARIABLE
     Dosage: MORE THAN 3MG PER DAY
     Route: 065
  4. PREDNISOLONE. [Suspect]
     Active Substance: PREDNISOLONE
     Indication: ENTERITIS
     Dosage: UNK

REACTIONS (3)
  - Off label use [Unknown]
  - Infection susceptibility increased [Unknown]
  - Gastroenteritis norovirus [Unknown]

NARRATIVE: CASE EVENT DATE: 201801
